FAERS Safety Report 23089100 (Version 1)
Quarter: 2023Q4

REPORT INFORMATION
  Report Type: Spontaneous
  Country: KR (occurrence: KR)
  Receive Date: 20231020
  Receipt Date: 20231020
  Transmission Date: 20240109
  Serious: Yes (Hospitalization)
  Sender: FDA-Public Use
  Company Number: KR-MICRO LABS LIMITED-ML2023-05924

PATIENT
  Age: 59 Year
  Sex: Male

DRUGS (2)
  1. DIPHENHYDRAMINE HYDROCHLORIDE [Suspect]
     Active Substance: DIPHENHYDRAMINE HYDROCHLORIDE
     Indication: Product used for unknown indication
     Dosage: INGESTED 40 TABLETS OF DIPHENHYDRAMINE, WITH ALCOHOL
  2. ALCOHOL [Suspect]
     Active Substance: ALCOHOL
     Indication: Product used for unknown indication

REACTIONS (6)
  - Cerebral ataxia [Recovered/Resolved]
  - Toxicity to various agents [Recovered/Resolved]
  - Drug screen false positive [Recovered/Resolved]
  - Cross sensitivity reaction [Recovered/Resolved]
  - Alcohol interaction [Recovered/Resolved]
  - Overdose [Recovered/Resolved]
